FAERS Safety Report 21588545 (Version 1)
Quarter: 2022Q4

REPORT INFORMATION
  Report Type: Spontaneous
  Country: US (occurrence: US)
  Receive Date: 20221114
  Receipt Date: 20221114
  Transmission Date: 20230112
  Serious: Yes (Hospitalization, Other)
  Sender: FDA-Public Use
  Company Number: US-drreddys-SPO/USA/22/0157026

PATIENT
  Age: 75 Year
  Sex: Male

DRUGS (6)
  1. OLANZAPINE [Suspect]
     Active Substance: OLANZAPINE
     Indication: Agitation
     Dosage: REPEATED DOSES
     Route: 048
  2. DONEPEZIL [Concomitant]
     Active Substance: DONEPEZIL
     Indication: Dementia with Lewy bodies
  3. VALPROIC ACID [Concomitant]
     Active Substance: VALPROIC ACID
     Indication: Dementia with Lewy bodies
  4. CLOZAPINE [Concomitant]
     Active Substance: CLOZAPINE
     Indication: Dementia with Lewy bodies
     Dosage: TITRATION
  5. CLOZAPINE [Concomitant]
     Active Substance: CLOZAPINE
     Dosage: GRADUAL UP-TITRATION
  6. CLOZAPINE [Concomitant]
     Active Substance: CLOZAPINE

REACTIONS (3)
  - Condition aggravated [Recovered/Resolved]
  - Cognitive disorder [Recovered/Resolved]
  - Motor dysfunction [Recovered/Resolved]
